FAERS Safety Report 16042008 (Version 1)
Quarter: 2019Q1

REPORT INFORMATION
  Report Type: Spontaneous
  Country: US (occurrence: US)
  Receive Date: 20190306
  Receipt Date: 20190306
  Transmission Date: 20190418
  Serious: No
  Sender: FDA-Public Use
  Company Number: US-AKORN PHARMACEUTICALS-2018AKN00816

PATIENT
  Sex: Male
  Weight: 72.56 kg

DRUGS (6)
  1. MYORISAN [Suspect]
     Active Substance: ISOTRETINOIN
     Indication: ACNE CYSTIC
     Dosage: 60 MG, 1X/DAY, DIVIDED DOSE
     Route: 048
     Dates: start: 20180227, end: 201804
  2. CLARAVIS [Suspect]
     Active Substance: ISOTRETINOIN
     Indication: ACNE CYSTIC
     Dosage: 0 MG, 1X/DAY, DIVIDED DOSE
     Route: 048
     Dates: start: 20180315, end: 2018
  3. CLARAVIS [Suspect]
     Active Substance: ISOTRETINOIN
     Dosage: 0 MG, 1X/DAY, DIVIDED DOSE
     Dates: start: 20180315, end: 2018
  4. MYORISAN [Suspect]
     Active Substance: ISOTRETINOIN
     Dosage: 70 MG, 1X/DAY, DIVIDED DOSE
     Route: 048
     Dates: start: 20180227, end: 201804
  5. MYORISAN [Suspect]
     Active Substance: ISOTRETINOIN
     Indication: ACNE CYSTIC
     Dosage: 60 MG, 1X/DAY, DIVIDED DOSE
     Route: 048
     Dates: start: 20180315, end: 201804
  6. MYORISAN [Suspect]
     Active Substance: ISOTRETINOIN
     Dosage: 70 MG, 1X/DAY, DIVIDED DOSE
     Route: 048
     Dates: start: 20180315, end: 201804

REACTIONS (1)
  - Chapped lips [Recovered/Resolved]

NARRATIVE: CASE EVENT DATE: 2018
